FAERS Safety Report 4736723-4 (Version None)
Quarter: 2005Q3

REPORT INFORMATION
  Report Type: 
  Country: None (occurrence: None)
  Receive Date: 20050808
  Receipt Date: 20050808
  Transmission Date: 20060218
  Serious: Yes (Death, Hospitalization)
  Sender: FDA-Public Use
  Company Number: None

PATIENT
  Age: 60 Year
  Sex: Male
  Weight: 95.2554 kg

DRUGS (12)
  1. AMITRIPTYLINE [Suspect]
     Indication: ANXIETY
     Dosage: 25 MG
     Dates: start: 20050520, end: 20050721
  2. AMITRIPTYLINE [Suspect]
     Indication: DEPRESSION
     Dosage: 25 MG
     Dates: start: 20050520, end: 20050721
  3. SEROQUEL [Suspect]
     Indication: HEADACHE
     Dosage: 100 MG
  4. SEROQUEL [Suspect]
     Indication: HYPERTENSION
     Dosage: 100 MG
  5. LISINOPRIL [Concomitant]
  6. ESTRAZOLAM [Concomitant]
  7. DICLOFENAC [Concomitant]
  8. LIPITOR [Concomitant]
  9. LEVAQUIN [Concomitant]
  10. MEDROL [Concomitant]
  11. ALLEGRA [Concomitant]
  12. RHINOCORT [Concomitant]

REACTIONS (12)
  - AGITATION [None]
  - ANXIETY [None]
  - ARTHRALGIA [None]
  - CHROMATURIA [None]
  - COMPLETED SUICIDE [None]
  - CONSTIPATION [None]
  - FEELING ABNORMAL [None]
  - FLUSHING [None]
  - HEADACHE [None]
  - INSOMNIA [None]
  - NERVOUSNESS [None]
  - RESTLESSNESS [None]
